FAERS Safety Report 8002459-X (Version None)
Quarter: 2011Q4

REPORT INFORMATION
  Report Type: 
  Country: None (occurrence: None)
  Receive Date: 20111222
  Receipt Date: 20111213
  Transmission Date: 20120403
  Serious: Yes (Other)
  Sender: FDA-Public Use
  Company Number: US-ABBOTT-11P-163-0883233-00

PATIENT
  Age: 48 Year
  Sex: Female

DRUGS (4)
  1. PAIN PILLS [Concomitant]
     Indication: ARTHRALGIA
  2. NOVOLOG [Concomitant]
     Indication: PRODUCT USED FOR UNKNOWN INDICATION
     Dosage: PEN - BEFORE MEALS AND BEDTIME
     Dates: start: 20080101
  3. HUMIRA [Suspect]
     Indication: RHEUMATOID ARTHRITIS
     Dosage: INTERRUPTED ONCE FOR ONE MONTH
     Dates: start: 20030101
  4. ANTIHYPERTENSIVES [Concomitant]
     Indication: HYPERTENSION

REACTIONS (10)
  - BLADDER OPERATION [None]
  - VENOUS OCCLUSION [None]
  - INJECTION SITE PAIN [None]
  - BLOOD CHOLESTEROL INCREASED [None]
  - ABDOMINAL PAIN UPPER [None]
  - DEPRESSION [None]
  - ARTHRITIS [None]
  - MOBILITY DECREASED [None]
  - SHOULDER OPERATION [None]
  - ARTHRALGIA [None]
